FAERS Safety Report 16676318 (Version 2)
Quarter: 2020Q2

REPORT INFORMATION
  Report Type: Spontaneous
  Country: US (occurrence: US)
  Receive Date: 20190807
  Receipt Date: 20200415
  Transmission Date: 20200713
  Serious: Yes (Other)
  Sender: FDA-Public Use
  Company Number: US-GILEAD-2019-0421712

PATIENT
  Age: 48 Year
  Sex: Male

DRUGS (52)
  1. ODEFSEY [Concomitant]
     Active Substance: EMTRICITABINE\RILPIVIRINE HYDROCHLORIDE\TENOFOVIR ALAFENAMIDE FUMARATE
  2. CYCLOBENZAPRINE. [Concomitant]
     Active Substance: CYCLOBENZAPRINE
  3. METFORMIN [Concomitant]
     Active Substance: METFORMIN HYDROCHLORIDE
  4. TIZANIDINE. [Concomitant]
     Active Substance: TIZANIDINE
  5. AZITHROMYCIN ANHYDROUS. [Concomitant]
     Active Substance: AZITHROMYCIN ANHYDROUS
  6. METHOCARBAMOL. [Concomitant]
     Active Substance: METHOCARBAMOL
  7. LISINOPRIL. [Concomitant]
     Active Substance: LISINOPRIL
  8. CHANTIX [Concomitant]
     Active Substance: VARENICLINE TARTRATE
  9. BIKTARVY [Concomitant]
     Active Substance: BICTEGRAVIR SODIUM\EMTRICITABINE\TENOFOVIR ALAFENAMIDE FUMARATE
  10. VENTOLIN HFA [Concomitant]
     Active Substance: ALBUTEROL SULFATE
  11. HYDROCORTISONE VALERATE. [Concomitant]
     Active Substance: HYDROCORTISONE VALERATE
  12. PEG 3350 + ELECTROLYTES [Concomitant]
  13. AMOXICILLIN CLAVULANIC ACID [Concomitant]
     Active Substance: AMOXICILLIN\CLAVULANIC ACID
  14. NORTRIPTYLINE [Concomitant]
     Active Substance: NORTRIPTYLINE
  15. HYDROCODONE/ACETAMINOPHEN [Concomitant]
     Active Substance: ACETAMINOPHEN\HYDROCODONE
  16. VIREAD [Suspect]
     Active Substance: TENOFOVIR DISOPROXIL FUMARATE
     Indication: HIV INFECTION
     Dosage: UNK
     Route: 065
     Dates: start: 2001, end: 200410
  17. LORATADINE. [Concomitant]
     Active Substance: LORATADINE
  18. PROAIR HFA [Concomitant]
     Active Substance: ALBUTEROL SULFATE
  19. DIPHENHYDRAMINE. [Concomitant]
     Active Substance: DIPHENHYDRAMINE
  20. METHYLPREDNISOLONE. [Concomitant]
     Active Substance: METHYLPREDNISOLONE
  21. GEMFIBROZIL. [Concomitant]
     Active Substance: GEMFIBROZIL
  22. MOMETASONE [Concomitant]
     Active Substance: MOMETASONE
  23. ATRIPLA [Suspect]
     Active Substance: EFAVIRENZ\EMTRICITABINE\TENOFOVIR DISOPROXIL FUMARATE
     Indication: HIV INFECTION
     Dosage: UNK
     Route: 048
     Dates: start: 20140304, end: 201503
  24. NYSTATIN. [Concomitant]
     Active Substance: NYSTATIN
  25. VENLAFAXINE [Concomitant]
     Active Substance: VENLAFAXINE HYDROCHLORIDE
  26. MONTELUKAST [Concomitant]
     Active Substance: MONTELUKAST SODIUM
  27. DOK [Concomitant]
     Active Substance: DOCUSATE SODIUM
  28. CLOTRIMAZOLE. [Concomitant]
     Active Substance: CLOTRIMAZOLE
  29. LORAZEPAM. [Concomitant]
     Active Substance: LORAZEPAM
  30. GABAPENTIN. [Concomitant]
     Active Substance: GABAPENTIN
  31. CIPROFLOXACIN. [Concomitant]
     Active Substance: CIPROFLOXACIN
  32. CARISOPRODOL. [Concomitant]
     Active Substance: CARISOPRODOL
  33. TRUVADA [Suspect]
     Active Substance: EMTRICITABINE\TENOFOVIR DISOPROXIL FUMARATE
     Indication: HIV INFECTION
     Dosage: UNK
     Route: 048
     Dates: start: 200410, end: 201102
  34. COMPLERA [Suspect]
     Active Substance: EMTRICITABINE\RILPIVIRINE HYDROCHLORIDE\TENOFOVIR DISOPROXIL FUMARATE
     Indication: HIV INFECTION
     Dosage: UNK
     Route: 048
     Dates: start: 20160606, end: 20160825
  35. FLUTICASONE. [Concomitant]
     Active Substance: FLUTICASONE
  36. TAMSULOSIN [Concomitant]
     Active Substance: TAMSULOSIN
  37. ATORVASTATIN [Concomitant]
     Active Substance: ATORVASTATIN
  38. MELOXICAM. [Concomitant]
     Active Substance: MELOXICAM
  39. OXYCODONE AND ACETAMINOPHEN [Concomitant]
     Active Substance: ACETAMINOPHEN\OXYCODONE HYDROCHLORIDE
  40. PROMETHAZINE DM [Concomitant]
     Active Substance: DEXTROMETHORPHAN HYDROBROMIDE\PROMETHAZINE HYDROCHLORIDE
  41. FLUCONAZOLE. [Concomitant]
     Active Substance: FLUCONAZOLE
  42. OMEPRAZOLE. [Concomitant]
     Active Substance: OMEPRAZOLE
  43. CEFDINIR. [Concomitant]
     Active Substance: CEFDINIR
  44. VIAGRA [Concomitant]
     Active Substance: SILDENAFIL CITRATE
  45. CLOPIDOGREL [Concomitant]
     Active Substance: CLOPIDOGREL BISULFATE
  46. MORPHINE SULF [Concomitant]
     Active Substance: MORPHINE SULFATE
  47. CYANOCOBALAMIN. [Concomitant]
     Active Substance: CYANOCOBALAMIN
  48. LEVOFLOXACIN. [Concomitant]
     Active Substance: LEVOFLOXACIN
  49. FINASTERIDE. [Concomitant]
     Active Substance: FINASTERIDE
  50. LYRICA [Concomitant]
     Active Substance: PREGABALIN
  51. WARFARIN SODIUM. [Concomitant]
     Active Substance: WARFARIN SODIUM
  52. FOLIC ACID. [Concomitant]
     Active Substance: FOLIC ACID

REACTIONS (9)
  - Osteonecrosis [Not Recovered/Not Resolved]
  - Emotional distress [Unknown]
  - Bone loss [Unknown]
  - Bone density decreased [Unknown]
  - Pain [Unknown]
  - Anhedonia [Unknown]
  - Fracture [Unknown]
  - Anxiety [Unknown]
  - Economic problem [Unknown]

NARRATIVE: CASE EVENT DATE: 201108
